FAERS Safety Report 9444374 (Version 1)
Quarter: 2013Q3

REPORT INFORMATION
  Report Type: Spontaneous
  Country: US (occurrence: US)
  Receive Date: 20130807
  Receipt Date: 20130807
  Transmission Date: 20140515
  Serious: No
  Sender: FDA-Public Use
  Company Number: US-BAYER-2013-095370

PATIENT
  Age: 81 Year
  Sex: Female
  Weight: 75 kg

DRUGS (4)
  1. ALEVE CAPLET [Suspect]
     Indication: BACK PAIN
     Dosage: 1 DF, BID
     Route: 048
     Dates: start: 20130805
  2. AMLODIPINE BESYLATE [Concomitant]
  3. LEVOTHYROXINE [Concomitant]
  4. CITALOPRAM [Concomitant]

REACTIONS (1)
  - Drug ineffective [None]
